FAERS Safety Report 15036901 (Version 1)
Quarter: 2018Q2

REPORT INFORMATION
  Report Type: Spontaneous
  Country: US (occurrence: US)
  Receive Date: 20180530
  Receipt Date: 20180530
  Transmission Date: 20180711
  Serious: No
  Sender: FDA-Public Use
  Company Number: None

PATIENT
  Age: 63 Year
  Sex: Female
  Weight: 131.54 kg

DRUGS (5)
  1. DICLOFENAC SODIUM DELAYED RELEASE [Suspect]
     Active Substance: DICLOFENAC SODIUM
     Indication: PAIN IN EXTREMITY
     Dosage: ?          QUANTITY:1 DF DOSAGE FORM;?
     Route: 048
     Dates: start: 20180316, end: 20180415
  2. ROSUVASTATIN. [Concomitant]
     Active Substance: ROSUVASTATIN
  3. POTASSIUM CL ER [Concomitant]
     Active Substance: POTASSIUM CHLORIDE
  4. DICLOFENAC SODIUM DELAYED RELEASE [Suspect]
     Active Substance: DICLOFENAC SODIUM
     Indication: ARTHRITIS
     Dosage: ?          QUANTITY:1 DF DOSAGE FORM;?
     Route: 048
     Dates: start: 20180316, end: 20180415
  5. CHLORTHALIDONE. [Concomitant]
     Active Substance: CHLORTHALIDONE

REACTIONS (5)
  - Chills [None]
  - Arthralgia [None]
  - Night sweats [None]
  - Swelling [None]
  - Tremor [None]

NARRATIVE: CASE EVENT DATE: 20180415
